FAERS Safety Report 5585690-2 (Version None)
Quarter: 2008Q1

REPORT INFORMATION
  Report Type: 
  Country: None (occurrence: None)
  Receive Date: 20080109
  Receipt Date: 20071231
  Transmission Date: 20080703
  Serious: Yes (Death)
  Sender: FDA-Public Use
  Company Number: US-GILEAD-2007-0014758

PATIENT
  Sex: Female
  Weight: 62.1 kg

DRUGS (8)
  1. AMBRISENTAN [Suspect]
     Indication: PULMONARY HYPERTENSION
     Dates: start: 20071001
  2. TRAZODONE HCL [Concomitant]
     Dates: start: 20010101
  3. FUROSEMIDE [Concomitant]
     Dates: start: 20040101
  4. BUPROPION HCL [Concomitant]
     Dates: start: 20010101
  5. ALBUTEROL [Concomitant]
     Dates: start: 20060101
  6. ASPIRIN [Concomitant]
     Dates: start: 20070918
  7. MAGNESIUM OXIDE [Concomitant]
     Dates: start: 20070901
  8. OXYGEN [Concomitant]
     Dates: start: 20071201

REACTIONS (1)
  - DEATH [None]
